FAERS Safety Report 5672512-4 (Version None)
Quarter: 2008Q1

REPORT INFORMATION
  Report Type: 
  Country: None (occurrence: None)
  Receive Date: 20080317
  Receipt Date: 20080305
  Transmission Date: 20080703
  Serious: Yes (Other)
  Sender: FDA-Public Use
  Company Number: 2008RL000066

PATIENT
  Age: 56 Year
  Sex: Female

DRUGS (7)
  1. LOVAZA [Suspect]
     Indication: BLOOD TRIGLYCERIDES INCREASED
     Dosage: HS; PO; 4 GM; QD; PO; 1 GM; BID; PO
     Route: 048
     Dates: end: 20080303
  2. LOVAZA [Suspect]
     Indication: BLOOD TRIGLYCERIDES INCREASED
     Dosage: HS; PO; 4 GM; QD; PO; 1 GM; BID; PO
     Route: 048
     Dates: start: 20071201
  3. LOVAZA [Suspect]
     Indication: BLOOD TRIGLYCERIDES INCREASED
     Dosage: HS; PO; 4 GM; QD; PO; 1 GM; BID; PO
     Route: 048
     Dates: start: 20080101
  4. VITAMIN E [Concomitant]
  5. COD LIVER OIL [Concomitant]
  6. PREMARIN OIL [Concomitant]
  7. ENSURE [Concomitant]

REACTIONS (6)
  - DIZZINESS [None]
  - FEELING COLD [None]
  - FEELING DRUNK [None]
  - HEADACHE [None]
  - THINKING ABNORMAL [None]
  - VISUAL DISTURBANCE [None]
